FAERS Safety Report 5642605-6 (Version None)
Quarter: 2008Q1

REPORT INFORMATION
  Report Type: 
  Country: None (occurrence: None)
  Receive Date: 20080228
  Receipt Date: 20080219
  Transmission Date: 20080703
  Serious: Yes (Hospitalization)
  Sender: FDA-Public Use
  Company Number: NO-JNJFOC-20080204321

PATIENT
  Age: 77 Year
  Sex: Female

DRUGS (2)
  1. REMICADE [Suspect]
  2. REMICADE [Suspect]
     Indication: RHEUMATOID ARTHRITIS

REACTIONS (4)
  - BLOOD CREATININE INCREASED [None]
  - LARGE INTESTINAL ULCER [None]
  - PELVIC VENOUS THROMBOSIS [None]
  - RENAL CYST [None]
